FAERS Safety Report 8862162 (Version 3)
Quarter: 2013Q1

REPORT INFORMATION
  Report Type: Spontaneous
  Country: US (occurrence: US)
  Receive Date: 20121026
  Receipt Date: 20130103
  Transmission Date: 20140127
  Serious: Yes (Other)
  Sender: FDA-Public Use
  Company Number: US-BAYER-2012-109337

PATIENT
  Age: 40 Year
  Sex: Female

DRUGS (1)
  1. MIRENA [Suspect]
     Indication: CONTRACEPTION
     Dosage: 20 MCG/24HR, CONT
     Route: 015
     Dates: start: 20110527, end: 20121016

REACTIONS (7)
  - Ovarian cyst [None]
  - Menorrhagia [Recovering/Resolving]
  - Device dislocation [None]
  - Pain [None]
  - Device issue [None]
  - Abdominal pain [None]
  - Genital haemorrhage [Recovering/Resolving]
